FAERS Safety Report 6504796-4 (Version None)
Quarter: 2009Q4

REPORT INFORMATION
  Report Type: 
  Country: None (occurrence: None)
  Receive Date: 20091216
  Receipt Date: 20091204
  Transmission Date: 20100525
  Serious: Yes (Death)
  Sender: FDA-Public Use
  Company Number: 2009AL007708

PATIENT
  Age: 72 Year
  Sex: Male

DRUGS (2)
  1. CARBAMAZEPINE [Suspect]
     Indication: EPILEPSY
     Dosage: 600 MG; BID; PO
     Route: 048
  2. LAMICTAL [Concomitant]

REACTIONS (4)
  - CONDITION AGGRAVATED [None]
  - DYSPNOEA [None]
  - EPILEPSY [None]
  - VOMITING [None]
